FAERS Safety Report 4381631-4 (Version None)
Quarter: 2004Q2

REPORT INFORMATION
  Report Type: 
  Country: None (occurrence: None)
  Receive Date: 20040615
  Receipt Date: 20040525
  Transmission Date: 20050107
  Serious: Yes (Hospitalization)
  Sender: FDA-Public Use
  Company Number: B0332035A

PATIENT
  Age: 73 Year
  Sex: Male

DRUGS (3)
  1. DIGOXIN [Suspect]
     Dosage: .25 MG/PER DAY
  2. CLARITHROMYCIN [Suspect]
     Dosage: 500 MG/TWICE PER DAY/ORAL
     Route: 048
  3. FUROSEMIDE [Concomitant]

REACTIONS (5)
  - BRONCHOPNEUMONIA [None]
  - CARDIOACTIVE DRUG LEVEL INCREASED [None]
  - CONVULSION [None]
  - HYPOTENSION [None]
  - TORSADE DE POINTES [None]
